FAERS Safety Report 19499255 (Version 1)
Quarter: 2021Q3

REPORT INFORMATION
  Report Type: Spontaneous
  Country: FR (occurrence: FR)
  Receive Date: 20210706
  Receipt Date: 20210706
  Transmission Date: 20211014
  Serious: Yes (Other)
  Sender: FDA-Public Use
  Company Number: FR-AMNEAL PHARMACEUTICALS-2021-AMRX-02626

PATIENT
  Age: 35 Year
  Sex: Female

DRUGS (2)
  1. COCAINE [Suspect]
     Active Substance: COCAINE
     Indication: DRUG ABUSE
     Dosage: UNK
     Route: 065
  2. BUPRENORPHINE TRANSDERMAL SYSTEM [Suspect]
     Active Substance: BUPRENORPHINE
     Indication: DRUG WITHDRAWAL MAINTENANCE THERAPY
     Dosage: 8 MILLIGRAM, 1X/DAY
     Route: 065

REACTIONS (6)
  - Exposure during pregnancy [Unknown]
  - Placental infarction [Unknown]
  - Placental disorder [Unknown]
  - Intentional product misuse [Unknown]
  - Intermenstrual bleeding [Unknown]
  - Stillbirth [Unknown]
